FAERS Safety Report 21634061 (Version 1)
Quarter: 2022Q4

REPORT INFORMATION
  Report Type: Spontaneous
  Country: AU (occurrence: AU)
  Receive Date: 20221123
  Receipt Date: 20221123
  Transmission Date: 20230113
  Serious: Yes (Other)
  Sender: FDA-Public Use
  Company Number: AU-PFIZER INC-PV202200106930

PATIENT
  Age: 41 Year
  Sex: Male

DRUGS (4)
  1. LEUCOVORIN CALCIUM [Suspect]
     Active Substance: LEUCOVORIN CALCIUM
     Dosage: 30 MG
     Route: 042
  2. CYTARABINE [Suspect]
     Active Substance: CYTARABINE
     Indication: Neoplasm malignant
     Dosage: 175 MG
     Route: 042
  3. METHOTREXATE SODIUM [Suspect]
     Active Substance: METHOTREXATE SODIUM
     Indication: Neoplasm malignant
     Dosage: 250 MG
     Route: 042
  4. LOMUSTINE [Suspect]
     Active Substance: LOMUSTINE
     Indication: Neoplasm malignant
     Dosage: 170 MG
     Route: 042

REACTIONS (8)
  - Haematemesis [Recovered/Resolved]
  - Renal impairment [Recovered/Resolved]
  - Lower respiratory tract infection bacterial [Recovered/Resolved]
  - Staphylococcal infection [Recovered/Resolved]
  - Enanthema [Recovered/Resolved]
  - Hypocalcaemia [Recovered/Resolved]
  - Oedema [Recovered/Resolved]
  - Pyrexia [Recovered/Resolved]
